FAERS Safety Report 24566857 (Version 1)
Quarter: 2024Q4

REPORT INFORMATION
  Report Type: Spontaneous
  Country: US (occurrence: US)
  Receive Date: 20241030
  Receipt Date: 20241030
  Transmission Date: 20250114
  Serious: No
  Sender: GILEAD
  Company Number: US-GILEAD-2024-0692174

PATIENT
  Age: 63 Year
  Sex: Male

DRUGS (2)
  1. LENACAPAVIR [Suspect]
     Active Substance: LENACAPAVIR
     Indication: HIV infection
     Dosage: UNK
     Route: 058
     Dates: start: 202402
  2. LENACAPAVIR [Suspect]
     Active Substance: LENACAPAVIR
     Dosage: UNK
     Route: 058
     Dates: start: 20240827

REACTIONS (1)
  - Viral load increased [Not Recovered/Not Resolved]
